FAERS Safety Report 9440802 (Version 1)
Quarter: 2013Q3

REPORT INFORMATION
  Report Type: Spontaneous
  Country: US (occurrence: US)
  Receive Date: 20130805
  Receipt Date: 20130805
  Transmission Date: 20140515
  Serious: No
  Sender: FDA-Public Use
  Company Number: US-BAYER-2013-092232

PATIENT
  Age: 88 Year
  Sex: Female
  Weight: 53 kg

DRUGS (2)
  1. BAYER ADVANCED ASPIRIN EXTRA STRENGTH [Suspect]
     Indication: ARTHRITIS
     Dosage: 1 DF, BID
     Route: 048
  2. ALEVE CAPLET [Suspect]
     Indication: ARTHRITIS
     Route: 048

REACTIONS (3)
  - Drug ineffective [None]
  - Abdominal pain upper [None]
  - Incorrect drug administration duration [None]
